FAERS Safety Report 11756522 (Version 3)
Quarter: 2016Q1

REPORT INFORMATION
  Report Type: Spontaneous
  Country: JP (occurrence: JP)
  Receive Date: 20151119
  Receipt Date: 20160322
  Transmission Date: 20160525
  Serious: Yes (Hospitalization)
  Sender: FDA-Public Use
  Company Number: JP-009507513-1511JPN009357

PATIENT
  Age: 79 Year
  Sex: Female
  Weight: 42.6 kg

DRUGS (8)
  1. REBETOL [Suspect]
     Active Substance: RIBAVIRIN
     Indication: CHRONIC HEPATITIS C
     Dosage: DIVIDED DOSE FREQUENCY UNKNOWN
     Route: 048
     Dates: start: 20150925, end: 20151014
  2. DIGOXIN. [Concomitant]
     Active Substance: DIGOXIN
     Dosage: DIVIDED DOSE FREQUENCY UNKNOWN
     Route: 048
     Dates: start: 20151015
  3. LIXIANA [Concomitant]
     Active Substance: EDOXABAN TOSILATE MONOHYDRATE
     Dosage: DIVIDED DOSE FREQUENCY UNKNOWN, FORMULATION POR
     Route: 048
     Dates: start: 20151027
  4. CEFCAPENE PIVOXIL HYDROCHLORIDE [Concomitant]
     Active Substance: CEFCAPENE PIVOXIL HYDROCHLORIDE
     Dosage: DIVIDED DOSE FREQUENCY UNKNOWN, FORMULATION POR
     Route: 048
     Dates: start: 20151027
  5. SOVALDI [Suspect]
     Active Substance: SOFOSBUVIR
     Indication: CHRONIC HEPATITIS C
     Dosage: DIVIDED DOSE FREQUENCY UNKNOWN
     Route: 048
     Dates: start: 20150925, end: 20151014
  6. DIART [Concomitant]
     Active Substance: AZOSEMIDE
     Dosage: DIVIDED DOSE FREQUENCY UNKNOWN FORMULATION POR
     Route: 048
     Dates: start: 20151027
  7. SPIRONOLACTONE. [Concomitant]
     Active Substance: SPIRONOLACTONE
     Dosage: DIVIDED DOSE FREQUENCY UNKNOWN FORMULATION POR
     Route: 048
     Dates: start: 20151027
  8. FUROSEMIDE. [Concomitant]
     Active Substance: FUROSEMIDE
     Dosage: DIVIDED DOSE FREQUENCY UNKNOWN, FORMULATION POR
     Route: 048
     Dates: start: 20151015, end: 20151026

REACTIONS (2)
  - Cardiac failure [Recovering/Resolving]
  - Thrombophlebitis [Recovering/Resolving]

NARRATIVE: CASE EVENT DATE: 20151015
